FAERS Safety Report 10642788 (Version 1)
Quarter: 2014Q4

REPORT INFORMATION
  Report Type: Spontaneous
  Country: US (occurrence: None)
  Receive Date: 20141209
  Receipt Date: 20141209
  Transmission Date: 20150529
  Serious: No
  Sender: FDA-Public Use
  Company Number: None

PATIENT
  Age: 44 Year
  Sex: Female
  Weight: 88.45 kg

DRUGS (1)
  1. COPAXONE [Suspect]
     Active Substance: GLATIRAMER ACETATE
     Indication: MULTIPLE SCLEROSIS
     Dosage: 1 ML PRE FILLED INJECTION 3 TIMES A WEEK GIVEN INTO/UNDER THE SKIN
     Dates: start: 20140401, end: 20140901

REACTIONS (7)
  - Hyperacusis [None]
  - General physical condition abnormal [None]
  - Pain [None]
  - Mental status changes [None]
  - Injection site reaction [None]
  - Dizziness postural [None]
  - Impaired driving ability [None]

NARRATIVE: CASE EVENT DATE: 20140901
